FAERS Safety Report 7832313-5 (Version None)
Quarter: 2011Q4

REPORT INFORMATION
  Report Type: 
  Country: None (occurrence: None)
  Receive Date: 20111022
  Receipt Date: 20111010
  Transmission Date: 20120403
  Serious: Yes (Other)
  Sender: FDA-Public Use
  Company Number: US-BAYER-2011-006841

PATIENT
  Age: 21 Year
  Sex: Female
  Weight: 68.027 kg

DRUGS (19)
  1. YASMIN [Suspect]
     Indication: PREMENSTRUAL SYNDROME
  2. YAZ [Suspect]
     Indication: CONTRACEPTION
     Dosage: UNK
     Dates: start: 20080601, end: 20090801
  3. DROSPIRENONE AND ETHINYL ESTRADIOL [Suspect]
     Indication: ACNE
  4. LEXAPRO [Concomitant]
     Indication: CLONIC CONVULSION
     Dosage: UNK
     Dates: start: 20070101, end: 20080101
  5. PROMETHAZINE [Concomitant]
     Dosage: 25 MG, UNK
     Dates: start: 20090407
  6. TOPAMAX [Concomitant]
     Indication: CLONIC CONVULSION
     Dosage: UNK
     Dates: start: 20060101, end: 20080101
  7. YAZ [Suspect]
     Indication: ACNE
  8. DROSPIRENONE AND ETHINYL ESTRADIOL [Suspect]
     Indication: PREMENSTRUAL SYNDROME
  9. SULFAMETHOXAZOLE AND TRIMETHOPRIM [Concomitant]
     Dosage: UNK
     Dates: start: 20090209
  10. DROSPIRENONE AND ETHINYL ESTRADIOL [Suspect]
     Indication: CONTRACEPTION
     Dosage: UNK
     Dates: start: 20080601, end: 20090801
  11. LAMICTAL [Concomitant]
     Indication: CLONIC CONVULSION
     Dosage: UNK
     Dates: start: 20070101, end: 20080101
  12. YASMIN [Suspect]
     Indication: ACNE
  13. IBUPROFEN (ADVIL) [Concomitant]
     Dosage: UNK UNK, PRN
  14. HYDROCODONE BITARTRATE AND ACETAMINOPHEN [Concomitant]
     Dosage: UNK
     Dates: start: 20090407
  15. DICYCLOMINE [Concomitant]
     Dosage: 10 MG, UNK
     Dates: start: 20090209
  16. AMOXICILLIN AND CLAVULANATE POTASSIUM [Concomitant]
     Dosage: UNK
     Dates: start: 20090407
  17. YASMIN [Suspect]
     Indication: CONTRACEPTION
     Dosage: UNK
     Dates: start: 20080601, end: 20081201
  18. YAZ [Suspect]
     Indication: PREMENSTRUAL SYNDROME
  19. ASTELIN [Concomitant]
     Indication: MULTIPLE ALLERGIES
     Dosage: UNK
     Dates: start: 20050101

REACTIONS (4)
  - GALLBLADDER NON-FUNCTIONING [None]
  - EMOTIONAL DISTRESS [None]
  - ANXIETY [None]
  - PAIN [None]
